FAERS Safety Report 6078952-6 (Version None)
Quarter: 2009Q1

REPORT INFORMATION
  Report Type: 
  Country: None (occurrence: None)
  Receive Date: 20090216
  Receipt Date: 20090202
  Transmission Date: 20090719
  Serious: Yes (Hospitalization, Other)
  Sender: FDA-Public Use
  Company Number: US-ELI_LILLY_AND_COMPANY-US200812006049

PATIENT
  Sex: Female

DRUGS (15)
  1. FORTEO [Suspect]
     Indication: OSTEOPOROSIS
     Dosage: 20 UG, DAILY (1/D)
     Dates: start: 20070727
  2. EVISTA /SCH/ [Concomitant]
  3. MAGNESIUM OXIDE [Concomitant]
     Route: 042
     Dates: start: 20081201
  4. LIPITOR [Concomitant]
  5. DULCOLAX [Concomitant]
  6. BUSPAR [Concomitant]
  7. CALCIUM                                 /N/A/ [Concomitant]
  8. VITAMIN D [Concomitant]
  9. BENADRYL [Concomitant]
  10. DURAGESIC-100 [Concomitant]
  11. SYNTHROID [Concomitant]
  12. NEXIUM [Concomitant]
  13. TOPROL-XL [Concomitant]
  14. DIOVAN /01319601/ [Concomitant]
  15. EFFEXOR [Concomitant]

REACTIONS (12)
  - BLOOD MAGNESIUM DECREASED [None]
  - BLOOD MAGNESIUM INCREASED [None]
  - FALL [None]
  - GASTROINTESTINAL HYPOMOTILITY [None]
  - INTESTINAL OBSTRUCTION [None]
  - LABORATORY TEST ABNORMAL [None]
  - MALAISE [None]
  - MUSCULAR WEAKNESS [None]
  - NAUSEA [None]
  - PAIN [None]
  - VOMITING [None]
  - WEIGHT DECREASED [None]
